FAERS Safety Report 6072385-4 (Version None)
Quarter: 2009Q1

REPORT INFORMATION
  Report Type: 
  Country: None (occurrence: None)
  Receive Date: 20090209
  Receipt Date: 20090209
  Transmission Date: 20090719
  Serious: No
  Sender: FDA-Public Use
  Company Number: None

PATIENT
  Sex: Female
  Weight: 164 kg

DRUGS (1)
  1. DILANTIN [Suspect]
     Indication: EPILEPSY
     Dosage: 100MG 4 TIMES PER DAY PO
     Route: 048
     Dates: start: 19850929, end: 20090208

REACTIONS (9)
  - ANTICONVULSANT DRUG LEVEL BELOW THERAPEUTIC [None]
  - AURA [None]
  - CONVULSION [None]
  - DIZZINESS [None]
  - DRUG TOXICITY [None]
  - MALABSORPTION [None]
  - SOMNOLENCE [None]
  - THERAPEUTIC RESPONSE UNEXPECTED WITH DRUG SUBSTITUTION [None]
  - TINNITUS [None]
